FAERS Safety Report 4503610-6 (Version None)
Quarter: 2004Q4

REPORT INFORMATION
  Report Type: 
  Country: None (occurrence: None)
  Receive Date: 20041117
  Receipt Date: 20041111
  Transmission Date: 20050328
  Serious: Yes (Other)
  Sender: FDA-Public Use
  Company Number: PHBS2004FR15315

PATIENT
  Age: 26 Year
  Sex: Male

DRUGS (5)
  1. CYCLOSPORINE [Suspect]
     Indication: RENAL TRANSPLANT
     Route: 065
  2. AZATHIOPRINE [Suspect]
     Indication: RENAL TRANSPLANT
  3. STEROIDS NOS [Concomitant]
  4. MYCOPHENOLATE MOFETIL [Suspect]
     Indication: RENAL TRANSPLANT
     Dosage: 1 G, BID
  5. MYCOPHENOLATE MOFETIL [Suspect]
     Dosage: 1.5 G/D

REACTIONS (15)
  - ANTIGLIADIN ANTIBODY POSITIVE [None]
  - ASTHENIA [None]
  - BLOOD CREATININE INCREASED [None]
  - BLOOD FOLATE ABNORMAL [None]
  - BLOOD FOLATE DECREASED [None]
  - DIARRHOEA [None]
  - HYPOCHOLESTEROLAEMIA [None]
  - INTESTINAL VILLI ATROPHY [None]
  - KIDNEY TRANSPLANT REJECTION [None]
  - MUCOSAL EROSION [None]
  - NORMOCHROMIC NORMOCYTIC ANAEMIA [None]
  - RECTAL ULCER [None]
  - VITAMIN B12 DECREASED [None]
  - VITAMIN E DECREASED [None]
  - WEIGHT DECREASED [None]
